FAERS Safety Report 5195387-9 (Version None)
Quarter: 2006Q4

REPORT INFORMATION
  Report Type: 
  Country: None (occurrence: None)
  Receive Date: 20061229
  Receipt Date: 20061219
  Transmission Date: 20070319
  Serious: Yes (Other)
  Sender: FDA-Public Use
  Company Number: DE-PFIZER INC-2006155451

PATIENT
  Sex: Female

DRUGS (5)
  1. CABASERIL [Suspect]
     Indication: PARKINSON'S DISEASE
     Route: 048
  2. LEVODOPA [Concomitant]
  3. COMTESS [Concomitant]
  4. MADOPAR [Concomitant]
  5. AMANTADINE HCL [Concomitant]

REACTIONS (3)
  - GAIT DISTURBANCE [None]
  - MUSCLE RIGIDITY [None]
  - PARKINSON'S DISEASE [None]
